FAERS Safety Report 24596126 (Version 1)
Quarter: 2024Q4

REPORT INFORMATION
  Report Type: Report from Study
  Country: RU (occurrence: RU)
  Receive Date: 20241110
  Receipt Date: 20241110
  Transmission Date: 20250114
  Serious: Yes (Other)
  Sender: ALEXION PHARMACEUTICALS
  Company Number: RU-AstraZeneca-CH-00741326A

PATIENT

DRUGS (5)
  1. OLAPARIB [Suspect]
     Active Substance: OLAPARIB
     Route: 065
  2. OLAPARIB [Suspect]
     Active Substance: OLAPARIB
  3. OLAPARIB [Suspect]
     Active Substance: OLAPARIB
     Route: 065
  4. OLAPARIB [Suspect]
     Active Substance: OLAPARIB
  5. BEVACIZUMAB [Concomitant]
     Active Substance: BEVACIZUMAB

REACTIONS (1)
  - Embolism [Unknown]
